FAERS Safety Report 4790365-3 (Version None)
Quarter: 2005Q4

REPORT INFORMATION
  Report Type: 
  Country: None (occurrence: None)
  Receive Date: 20051005
  Receipt Date: 20051005
  Transmission Date: 20060501
  Serious: Yes (Hospitalization)
  Sender: FDA-Public Use
  Company Number: None

PATIENT
  Age: 52 Year
  Sex: Male

DRUGS (9)
  1. RITONAVIR 100MG [Suspect]
     Dosage: 100 MG PO QD
     Route: 048
  2. TENOFOVIR 300MG QD [Suspect]
     Dosage: 300MG QD
  3. ATAZANAVIR 300MG PO QD [Suspect]
     Dosage: 300MG PO QD
     Route: 048
  4. DIDANOSINE 250MG QD [Suspect]
     Dosage: 250 MG QD
  5. ADVAIR DISKUS 100/50 [Concomitant]
  6. VENTOLIN [Concomitant]
  7. . [Concomitant]
  8. BUSPIRONE HCL [Concomitant]
  9. HYDROCHLOROTHIAZIDE [Concomitant]

REACTIONS (4)
  - DIARRHOEA [None]
  - NAUSEA [None]
  - PANCREATITIS [None]
  - VOMITING [None]
